FAERS Safety Report 21823081 (Version 2)
Quarter: 2023Q1

REPORT INFORMATION
  Report Type: Spontaneous
  Country: US (occurrence: US)
  Receive Date: 20230105
  Receipt Date: 20230324
  Transmission Date: 20230417
  Serious: No
  Sender: FDA-Public Use
  Company Number: US-VIIV HEALTHCARE LIMITED-US2023AMR000123

PATIENT
  Sex: Female

DRUGS (4)
  1. CABENUVA [Suspect]
     Active Substance: CABOTEGRAVIR\RILPIVIRINE
     Indication: HIV infection
     Dosage: UNK UNK, Z, 600MG/900MG KIT EVERY OTHER MONTH
     Dates: start: 20211118
  2. CABENUVA [Suspect]
     Active Substance: CABOTEGRAVIR\RILPIVIRINE
  3. CABENUVA [Suspect]
     Active Substance: CABOTEGRAVIR\RILPIVIRINE
  4. CABENUVA [Suspect]
     Active Substance: CABOTEGRAVIR\RILPIVIRINE
     Indication: HIV infection
     Dosage: UNK UNK, Z: EVERY OTHER MONTH, 600 900 MG
     Dates: start: 20211123

REACTIONS (1)
  - Injection site pruritus [Not Recovered/Not Resolved]
